FAERS Safety Report 25656352 (Version 1)
Quarter: 2025Q3

REPORT INFORMATION
  Report Type: Spontaneous
  Country: EU (occurrence: EU)
  Receive Date: 20250807
  Receipt Date: 20250807
  Transmission Date: 20251021
  Serious: Yes (Life-Threatening, Hospitalization, Other)
  Sender: NOVA LABORATORIES LIMITED
  Company Number: EU-Nova Laboratories Limited-2182064

PATIENT
  Age: 6 Year
  Sex: Female
  Weight: 17 kg

DRUGS (2)
  1. PURIXAN [Suspect]
     Active Substance: MERCAPTOPURINE
     Indication: Acute lymphocytic leukaemia
     Dates: start: 20150304, end: 20150310
  2. BACTRIM [Concomitant]
     Active Substance: SULFAMETHOXAZOLE\TRIMETHOPRIM

REACTIONS (15)
  - Abdominal pain [Unknown]
  - Accidental overdose [Recovered/Resolved]
  - Product administration error [Recovered/Resolved]
  - Diarrhoea [Recovered/Resolved]
  - Vomiting [Recovered/Resolved]
  - Hepatocellular injury [Unknown]
  - Hepatic function abnormal [Unknown]
  - Aplastic anaemia [Not Recovered/Not Resolved]
  - Proctitis [Recovered/Resolved]
  - Cholestasis [Unknown]
  - Coagulopathy [Unknown]
  - Pneumonia [Recovering/Resolving]
  - Respiratory distress [Unknown]
  - Mucosal inflammation [Recovered/Resolved]
  - Bone marrow failure [Recovered/Resolved]

NARRATIVE: CASE EVENT DATE: 20150310
